FAERS Safety Report 20951933 (Version 1)
Quarter: 2022Q2

REPORT INFORMATION
  Report Type: Report from Study
  Country: US (occurrence: None)
  Receive Date: 20220613
  Receipt Date: 20220613
  Transmission Date: 20220720
  Serious: Yes (Death)
  Sender: FDA-Public Use
  Company Number: 2022A218001

PATIENT
  Age: 32379 Day
  Sex: Female

DRUGS (3)
  1. TAGRISSO [Suspect]
     Active Substance: OSIMERTINIB
     Indication: Metastases to lung
     Route: 048
     Dates: start: 20220128
  2. TAGRISSO [Suspect]
     Active Substance: OSIMERTINIB
     Indication: Osteoporosis
     Route: 048
     Dates: start: 20220128
  3. PROLIA [Concomitant]
     Active Substance: DENOSUMAB
     Route: 065

REACTIONS (1)
  - Death [Fatal]

NARRATIVE: CASE EVENT DATE: 20220518
